FAERS Safety Report 6975982-4 (Version None)
Quarter: 2010Q3

REPORT INFORMATION
  Report Type: 
  Country: None (occurrence: None)
  Receive Date: 20100910
  Receipt Date: 20100827
  Transmission Date: 20110219
  Serious: Yes (Hospitalization, Other)
  Sender: FDA-Public Use
  Company Number: US-SANOFI-AVENTIS-2010SA052511

PATIENT
  Age: 41 Year
  Sex: Male

DRUGS (6)
  1. MULTAQ [Suspect]
     Indication: ATRIAL FIBRILLATION
     Route: 048
     Dates: start: 20100708, end: 20100730
  2. CRESTOR [Concomitant]
  3. COUMADIN [Concomitant]
  4. LISINOPRIL [Concomitant]
  5. HYDROCHLOROTHIAZIDE [Concomitant]
  6. ASPIRIN [Concomitant]

REACTIONS (5)
  - ARTERIOSPASM CORONARY [None]
  - CHEST PAIN [None]
  - DRUG INEFFECTIVE [None]
  - ELECTROCARDIOGRAM ST SEGMENT ABNORMAL [None]
  - MYOCARDIAL INFARCTION [None]
